FAERS Safety Report 8604607-7 (Version None)
Quarter: 2012Q3

REPORT INFORMATION
  Report Type: 
  Country: None (occurrence: None)
  Receive Date: 20120808
  Receipt Date: 20120808
  Transmission Date: 20120928
  Serious: Yes (Other)
  Sender: FDA-Public Use
  Company Number: None

PATIENT
  Age: 11 Year
  Sex: Female
  Weight: 54.4316 kg

DRUGS (1)
  1. NEXIUM [Suspect]
     Indication: ABDOMINAL PAIN UPPER
     Dosage: 2 CAPSULES DAILY PO
     Route: 048
     Dates: start: 20120728, end: 20120806

REACTIONS (5)
  - HEADACHE [None]
  - FLATULENCE [None]
  - CONSTIPATION [None]
  - ABDOMINAL PAIN UPPER [None]
  - RASH [None]
